FAERS Safety Report 6916524-9 (Version None)
Quarter: 2010Q3

REPORT INFORMATION
  Report Type: 
  Country: None (occurrence: None)
  Receive Date: 20100810
  Receipt Date: 20100727
  Transmission Date: 20110219
  Serious: Yes (Life-Threatening, Hospitalization, Other)
  Sender: FDA-Public Use
  Company Number: US-ELI_LILLY_AND_COMPANY-US201008000248

PATIENT
  Age: 65 Year
  Sex: Male

DRUGS (3)
  1. EFFIENT [Suspect]
     Indication: ACUTE CORONARY SYNDROME
     Dosage: 60 MG, INITIAL LOADING DOSE
     Dates: start: 20100701, end: 20100701
  2. INTEGRILIN [Concomitant]
  3. HEPARIN [Concomitant]

REACTIONS (1)
  - ANAPHYLACTIC REACTION [None]
